FAERS Safety Report 6997242-8 (Version None)
Quarter: 2010Q3

REPORT INFORMATION
  Report Type: 
  Country: None (occurrence: None)
  Receive Date: 20100918
  Receipt Date: 20090924
  Transmission Date: 20110219
  Serious: No
  Sender: FDA-Public Use
  Company Number: US-WYE-H11211709

PATIENT
  Sex: Male

DRUGS (2)
  1. PRISTIQ [Suspect]
     Indication: DEPRESSION
     Dosage: 50 MG DAILY, THEN WAS 100 MG DAILY, THEN WAS 150 MG DAILY TO CONTINUES (DATES UNKNOWN)
     Route: 048
  2. VYVANSE [Concomitant]

REACTIONS (1)
  - INSOMNIA [None]
